FAERS Safety Report 21847094 (Version 1)
Quarter: 2023Q1

REPORT INFORMATION
  Report Type: Spontaneous
  Country: DE (occurrence: DE)
  Receive Date: 20230111
  Receipt Date: 20230111
  Transmission Date: 20230417
  Serious: Yes (Life-Threatening, Other)
  Sender: FDA-Public Use
  Company Number: DE-BFARM-22010285

PATIENT
  Age: 65 Year
  Sex: Female

DRUGS (16)
  1. CLOZAPINE [Suspect]
     Active Substance: CLOZAPINE
     Indication: Product used for unknown indication
     Dosage: UNK (0-150MG)
     Route: 048
     Dates: start: 20210715, end: 20210909
  2. QUETIAPINE FUMARATE [Concomitant]
     Active Substance: QUETIAPINE FUMARATE
     Indication: Product used for unknown indication
     Dosage: 800 MILLIGRAM, ONCE A DAY (SEIT L?NGEREM)
     Route: 048
  3. QUETIAPINE FUMARATE [Concomitant]
     Active Substance: QUETIAPINE FUMARATE
     Dosage: 1000 MILLIGRAM, ONCE A DAY
     Route: 048
     Dates: start: 20210916, end: 20210920
  4. QUETIAPINE FUMARATE [Concomitant]
     Active Substance: QUETIAPINE FUMARATE
     Dosage: 800 MILLIGRAM, ONCE A DAY
     Route: 048
     Dates: start: 20210921, end: 20210927
  5. QUETIAPINE FUMARATE [Concomitant]
     Active Substance: QUETIAPINE FUMARATE
     Dosage: 700 MILLIGRAM, ONCE A DAY
     Route: 048
     Dates: start: 20210928
  6. QUETIAPINE FUMARATE [Concomitant]
     Active Substance: QUETIAPINE FUMARATE
     Dosage: 600 MILLIGRAM, ONCE A DAY (B.A.W.)
     Route: 048
     Dates: start: 20210929
  7. QUETIAPINE [Concomitant]
     Active Substance: QUETIAPINE
     Indication: Product used for unknown indication
     Dosage: 50 MILLIGRAM, ONCE A DAY (SEIT L?NGEREM)
     Route: 048
     Dates: end: 20210909
  8. QUETIAPINE [Concomitant]
     Active Substance: QUETIAPINE
     Dosage: 100 MILLIGRAM, ONCE A DAY
     Route: 048
     Dates: start: 20210910, end: 20210926
  9. QUETIAPINE [Concomitant]
     Active Substance: QUETIAPINE
     Dosage: 50 MILLIGRAM, ONCE A DAY
     Route: 048
     Dates: start: 20210927, end: 20210929
  10. QUETIAPINE [Concomitant]
     Active Substance: QUETIAPINE
     Dosage: 50 MILLIGRAM, ONCE A DAY
     Route: 048
     Dates: start: 20211014, end: 20211018
  11. RISPERIDONE [Concomitant]
     Active Substance: RISPERIDONE
     Indication: Product used for unknown indication
     Dosage: 8 MILLIGRAM, ONCE A DAY (SEIT L?NGEREM)
     Route: 048
     Dates: end: 20210909
  12. RISPERIDONE [Concomitant]
     Active Substance: RISPERIDONE
     Dosage: 9 MILLIGRAM, ONCE A DAY
     Route: 048
     Dates: start: 20210910, end: 20210911
  13. RISPERIDONE [Concomitant]
     Active Substance: RISPERIDONE
     Dosage: 12 MILLIGRAM, ONCE A DAY
     Route: 048
     Dates: start: 20210912, end: 20211006
  14. RISPERIDONE [Concomitant]
     Active Substance: RISPERIDONE
     Dosage: 10 MILLIGRAM, ONCE A DAY
     Route: 048
     Dates: start: 20211007, end: 20211010
  15. RISPERIDONE [Concomitant]
     Active Substance: RISPERIDONE
     Dosage: 8 MILLIGRAM, ONCE A DAY
     Route: 048
     Dates: start: 20211011, end: 20211014
  16. RISPERIDONE [Concomitant]
     Active Substance: RISPERIDONE
     Dosage: UNK (6-3MG B.A.W.)
     Route: 048
     Dates: start: 20211015

REACTIONS (5)
  - Pulmonary infarction [Recovered/Resolved]
  - Pneumonia [Recovered/Resolved]
  - Agranulocytosis [Recovered/Resolved]
  - Pulmonary embolism [Recovered/Resolved]
  - Pyrexia [Recovered/Resolved]

NARRATIVE: CASE EVENT DATE: 20210909
